FAERS Safety Report 4721353-0 (Version None)
Quarter: 2005Q3

REPORT INFORMATION
  Report Type: 
  Country: None (occurrence: None)
  Receive Date: 20050721
  Receipt Date: 20040712
  Transmission Date: 20060218
  Serious: No
  Sender: FDA-Public Use
  Company Number: US-BRISTOL-MYERS SQUIBB COMPANY-12639456

PATIENT
  Sex: Female

DRUGS (6)
  1. COUMADIN [Suspect]
  2. COMBIVENT [Concomitant]
  3. METHOTREXATE [Concomitant]
  4. FOLIC ACID [Concomitant]
  5. ACIPHEX [Concomitant]
  6. FOSAMAX [Concomitant]

REACTIONS (1)
  - HYPERSENSITIVITY [None]
